FAERS Safety Report 6901394-5 (Version None)
Quarter: 2010Q3

REPORT INFORMATION
  Report Type: 
  Country: None (occurrence: None)
  Receive Date: 20100803
  Receipt Date: 20080616
  Transmission Date: 20110219
  Serious: No
  Sender: FDA-Public Use
  Company Number: US-PFIZER INC-2008010588

PATIENT
  Age: 85 Year
  Sex: Female

DRUGS (1)
  1. LYRICA [Suspect]
     Indication: FIBROMYALGIA
     Dates: start: 20070716

REACTIONS (4)
  - BALANCE DISORDER [None]
  - FIBROMYALGIA [None]
  - SOMNOLENCE [None]
  - WEIGHT INCREASED [None]
